FAERS Safety Report 6683456-3 (Version None)
Quarter: 2010Q2

REPORT INFORMATION
  Report Type: 
  Country: None (occurrence: None)
  Receive Date: 20100415
  Receipt Date: 20100406
  Transmission Date: 20101027
  Serious: Yes (Death, Hospitalization, Other)
  Sender: FDA-Public Use
  Company Number: HQWYE447227JUL04

PATIENT
  Sex: Female

DRUGS (3)
  1. PREMPRO [Suspect]
  2. PROVERA [Suspect]
  3. CONJUGATED ESTROGENS [Suspect]

REACTIONS (3)
  - CEREBROVASCULAR ACCIDENT [None]
  - PERIPHERAL VASCULAR DISORDER [None]
  - THROMBOSIS [None]
